FAERS Safety Report 4862175-X (Version None)
Quarter: 2005Q4

REPORT INFORMATION
  Report Type: 
  Country: None (occurrence: None)
  Receive Date: 20051221
  Receipt Date: 20051213
  Transmission Date: 20060501
  Serious: Yes (Other)
  Sender: FDA-Public Use
  Company Number: 2005UW18685

PATIENT
  Age: 42 Year
  Sex: Female

DRUGS (3)
  1. SEROQUEL [Suspect]
     Indication: SCHIZOPHRENIA
     Dates: start: 20020101
  2. CLOZAPINE [Concomitant]
     Indication: SCHIZOPHRENIA
     Dates: start: 20000101
  3. DIANE 25 [Concomitant]
     Indication: HORMONE LEVEL ABNORMAL
     Dates: start: 20000101

REACTIONS (15)
  - CONSTIPATION [None]
  - DIARRHOEA [None]
  - DYSPHAGIA [None]
  - FLATULENCE [None]
  - HYPERHIDROSIS [None]
  - LYMPHADENOPATHY [None]
  - MEMORY IMPAIRMENT [None]
  - NAUSEA [None]
  - PHARYNGOLARYNGEAL PAIN [None]
  - PYREXIA [None]
  - RED BLOOD CELL COUNT DECREASED [None]
  - RED BLOOD CELL SEDIMENTATION RATE INCREASED [None]
  - RENAL CYST [None]
  - SCHIZOPHRENIA [None]
  - TACHYCARDIA PAROXYSMAL [None]
